FAERS Safety Report 5431045-0 (Version None)
Quarter: 2007Q3

REPORT INFORMATION
  Report Type: 
  Country: None (occurrence: None)
  Receive Date: 20070830
  Receipt Date: 20070123
  Transmission Date: 20080115
  Serious: No
  Sender: FDA-Public Use
  Company Number: A0636710A

PATIENT
  Age: 53 Year
  Sex: Female

DRUGS (3)
  1. WELLBUTRIN XL [Suspect]
     Indication: DEPRESSION
     Dosage: 150MG PER DAY
     Route: 048
     Dates: start: 20061226, end: 20070117
  2. ACTOS [Concomitant]
  3. PROTONIX [Concomitant]

REACTIONS (1)
  - CHILLS [None]
